FAERS Safety Report 19043903 (Version 1)
Quarter: 2021Q1

REPORT INFORMATION
  Report Type: Spontaneous
  Country: US (occurrence: US)
  Receive Date: 20210323
  Receipt Date: 20210323
  Transmission Date: 20210420
  Serious: Yes (Other)
  Sender: FDA-Public Use
  Company Number: US-HIKMA PHARMACEUTICALS USA INC.-US-H14001-21-53905

PATIENT
  Age: 16 Year
  Sex: Female

DRUGS (3)
  1. VINORELBINE [Suspect]
     Active Substance: VINORELBINE TARTRATE
     Indication: RHABDOMYOSARCOMA
     Dosage: UNKNOWN
     Route: 065
  2. AVASTIN [Suspect]
     Active Substance: BEVACIZUMAB
     Indication: RHABDOMYOSARCOMA
     Dosage: UNKNOWN
     Route: 065
  3. CYCLOPHOSPHAMIDE. [Suspect]
     Active Substance: CYCLOPHOSPHAMIDE
     Indication: RHABDOMYOSARCOMA
     Dosage: UNKNOWN
     Route: 048

REACTIONS (2)
  - Neutropenia [Unknown]
  - Haematuria [Unknown]
